FAERS Safety Report 24946044 (Version 1)
Quarter: 2025Q1

REPORT INFORMATION
  Report Type: Report from Study
  Country: PL (occurrence: PL)
  Receive Date: 20250209
  Receipt Date: 20250209
  Transmission Date: 20250408
  Serious: Yes (Hospitalization, Disabling)
  Sender: BIOGEN
  Company Number: PL-BIOGEN-2025BI01299539

PATIENT
  Age: 42 Year
  Sex: Male

DRUGS (1)
  1. TOFERSEN [Suspect]
     Active Substance: TOFERSEN
     Indication: Product used for unknown indication
     Dosage: 15 ML EVERY 4 WEEKS
     Route: 050
     Dates: start: 20240201

REACTIONS (1)
  - Facial paralysis [Not Recovered/Not Resolved]

NARRATIVE: CASE EVENT DATE: 20250102
